FAERS Safety Report 24074578 (Version 1)
Quarter: 2024Q3

REPORT INFORMATION
  Report Type: Spontaneous
  Country: US (occurrence: US)
  Receive Date: 20240710
  Receipt Date: 20240710
  Transmission Date: 20241017
  Serious: No
  Sender: PIERRE FABRE MEDICAMENT
  Company Number: US-PFM-2024-00298

PATIENT
  Sex: Female
  Weight: 8.885 kg

DRUGS (3)
  1. HEMANGEOL [Suspect]
     Active Substance: PROPRANOLOL HYDROCHLORIDE
     Indication: Haemangioma
     Dosage: 3.1 ML, BID (2/DAY)
     Route: 048
     Dates: start: 20230901
  2. HEMANGEOL [Suspect]
     Active Substance: PROPRANOLOL HYDROCHLORIDE
     Dosage: HALF DOSE OF HEMANGEOL
     Route: 048
  3. HEMANGEOL [Suspect]
     Active Substance: PROPRANOLOL HYDROCHLORIDE
     Dosage: 3.5 ML, BID (2/DAY)
     Route: 048

REACTIONS (5)
  - Gastroenteritis viral [Unknown]
  - Dehydration [Unknown]
  - Constipation [Unknown]
  - Illness [Unknown]
  - Incorrect dose administered [Unknown]
